FAERS Safety Report 9307081 (Version 2)
Quarter: 2013Q4

REPORT INFORMATION
  Report Type: Spontaneous
  Country: US (occurrence: US)
  Receive Date: 20130523
  Receipt Date: 20131114
  Transmission Date: 20140711
  Serious: Yes (Hospitalization)
  Sender: FDA-Public Use
  Company Number: US-B.I. PHARMACEUTICALS,INC./RIDGEFIELD-2013-BI-14418BP

PATIENT
  Sex: Male
  Weight: 89.81 kg

DRUGS (15)
  1. PRADAXA [Suspect]
     Indication: ANTICOAGULANT THERAPY
     Dosage: 300 MG
     Route: 048
     Dates: start: 201201, end: 20121112
  2. PRADAXA [Suspect]
     Indication: ATRIAL FIBRILLATION
  3. ASPIRIN [Concomitant]
     Dosage: 81 MG
     Route: 048
  4. NEXIUM [Concomitant]
     Dosage: 40 MG
     Route: 048
  5. BUMEX [Concomitant]
     Dosage: 1 MG
     Route: 048
  6. ZYRTEC [Concomitant]
     Dosage: 10 MG
     Route: 048
  7. CHONDOITRIN GLUCOSAMINE [Concomitant]
     Route: 048
  8. IMDUR [Concomitant]
     Dosage: 60 MG
     Route: 048
  9. LEVOTHYROXINE [Concomitant]
     Dosage: 75 MCG
     Route: 048
  10. LISINOPRIL [Concomitant]
     Dosage: 10 MG
     Route: 048
  11. METOPROLOL [Concomitant]
     Dosage: 25 MG
     Route: 048
  12. SINGULAIR [Concomitant]
     Dosage: 10 MG
     Route: 048
  13. POTASSIUM CHLORIDE [Concomitant]
     Dosage: 20 MEQ
     Route: 048
  14. JANUVIA [Concomitant]
     Dosage: 100 MG
     Route: 048
  15. ACTOPLUS [Concomitant]
     Route: 048

REACTIONS (2)
  - Gastrointestinal haemorrhage [Unknown]
  - Anaemia [Unknown]
